FAERS Safety Report 20567246 (Version 3)
Quarter: 2022Q1

REPORT INFORMATION
  Report Type: Report from Study
  Country: ES (occurrence: None)
  Receive Date: 20220308
  Receipt Date: 20220324
  Transmission Date: 20220424
  Serious: Yes (Death, Hospitalization)
  Sender: FDA-Public Use
  Company Number: ES-ROCHE-3037310

PATIENT
  Age: 78 Year
  Sex: Male
  Weight: 76 kg

DRUGS (12)
  1. ATEZOLIZUMAB [Suspect]
     Active Substance: ATEZOLIZUMAB
     Indication: Bladder cancer
     Dosage: LAST DOSE PRIOR TO SAE ON 17/JAN/2022
     Route: 041
     Dates: start: 20211228, end: 20220207
  2. OMEPRAZOLE [Concomitant]
     Active Substance: OMEPRAZOLE
     Dosage: DAILY
     Route: 048
     Dates: start: 20170101, end: 20220223
  3. SPIRIVA [Concomitant]
     Active Substance: TIOTROPIUM BROMIDE MONOHYDRATE
     Indication: Chronic obstructive pulmonary disease
     Dosage: 1 INHALATION DAILY (INHALATION
     Dates: start: 20170101, end: 20220223
  4. EDOXABAN TOSYLATE [Concomitant]
     Active Substance: EDOXABAN TOSYLATE
     Indication: Atrial fibrillation
     Dosage: 30 MG DAILY (ORAL)
     Dates: start: 20190905, end: 20220223
  5. FUROSEMIDE [Concomitant]
     Active Substance: FUROSEMIDE
     Indication: Atrial fibrillation
     Dosage: 40 MG DAILY (ORAL)
     Dates: start: 20170101, end: 20220223
  6. ATORVASTATIN [Concomitant]
     Active Substance: ATORVASTATIN
     Indication: Dyslipidaemia
     Dosage: 80 MG DAILY (ORAL)
     Dates: start: 20170101, end: 20220223
  7. BISOPROLOL [Concomitant]
     Active Substance: BISOPROLOL
     Indication: Atrial fibrillation
     Dosage: 2.5 MG DAILY (ORAL)
     Dates: start: 20170101, end: 20220223
  8. VALSARTAN [Concomitant]
     Active Substance: VALSARTAN
     Indication: Hypertension
     Dosage: 51 MG DAILY (ORAL)
     Dates: start: 20170801, end: 20220223
  9. AMIODARONE [Concomitant]
     Active Substance: AMIODARONE
     Dosage: 200 MG DAILY (ORAL)
     Dates: start: 20170101, end: 20220223
  10. LORAZEPAM [Concomitant]
     Active Substance: LORAZEPAM
     Dosage: 1MG DAILY (ORAL)
     Dates: start: 20211115, end: 20220223
  11. ACETAMINOPHEN\TRAMADOL HYDROCHLORIDE [Concomitant]
     Active Substance: ACETAMINOPHEN\TRAMADOL HYDROCHLORIDE
     Dosage: 125 UG DAILY (INHALATION)
     Dates: start: 20170101, end: 20220223
  12. FLUTICASONE PROPIONATE\FORMOTEROL FUMARATE [Concomitant]
     Active Substance: FLUTICASONE PROPIONATE\FORMOTEROL FUMARATE
     Dates: start: 20170101, end: 20220223

REACTIONS (3)
  - Acute kidney injury [Fatal]
  - Hepatic ischaemia [Fatal]
  - Ischaemic cardiomyopathy [Fatal]

NARRATIVE: CASE EVENT DATE: 20220214
